FAERS Safety Report 14795295 (Version 2)
Quarter: 2018Q3

REPORT INFORMATION
  Report Type: Spontaneous
  Country: US (occurrence: US)
  Receive Date: 20180423
  Receipt Date: 20180927
  Transmission Date: 20181010
  Serious: Yes (Death, Other)
  Sender: FDA-Public Use
  Company Number: US-ASTRAZENECA-2018SE48472

PATIENT
  Age: 71 Year
  Sex: Male

DRUGS (50)
  1. AMLODIPINE [Concomitant]
     Active Substance: AMLODIPINE BESYLATE
     Indication: HYPERTENSION
     Dosage: 5 MG
     Dates: start: 20121114
  2. CARISOPRODOL. [Concomitant]
     Active Substance: CARISOPRODOL
     Indication: MUSCLE SPASMS
     Dosage: 350 MG
     Route: 065
     Dates: start: 20080302
  3. FOLIC ACID. [Concomitant]
     Active Substance: FOLIC ACID
     Indication: ANAEMIA
     Dosage: 1 MG
     Route: 065
     Dates: start: 20101202
  4. LEVAQUIN [Concomitant]
     Active Substance: LEVOFLOXACIN
     Indication: INFECTION
     Dosage: 500 MG
     Route: 065
     Dates: start: 20080515
  5. LORAZEPAM. [Concomitant]
     Active Substance: LORAZEPAM
     Indication: SEIZURE
     Dosage: 0.5 MG
     Route: 065
     Dates: start: 20081114
  6. NEXIUM [Suspect]
     Active Substance: ESOMEPRAZOLE MAGNESIUM
     Indication: GASTROOESOPHAGEAL REFLUX DISEASE
     Route: 048
     Dates: start: 20110701, end: 201711
  7. VITAMIN B NOS [Concomitant]
     Active Substance: VITAMIN B
     Indication: ROUTINE HEALTH MAINTENANCE
  8. AVELOX [Concomitant]
     Active Substance: MOXIFLOXACIN HYDROCHLORIDE
     Indication: INFECTION
  9. AZITHROMYCIN ANHYDROUS. [Concomitant]
     Active Substance: AZITHROMYCIN ANHYDROUS
     Indication: INFECTION
     Dosage: 250 MG
     Route: 065
     Dates: start: 20091114
  10. FLUTICASONE. [Concomitant]
     Active Substance: FLUTICASONE
     Indication: ASTHMA
  11. GABAPENTIN. [Concomitant]
     Active Substance: GABAPENTIN
     Indication: NEURALGIA
  12. METOPROLOL. [Concomitant]
     Active Substance: METOPROLOL
     Indication: HYPERTENSION
  13. NOVOLOG [Concomitant]
     Active Substance: INSULIN ASPART
     Indication: DIABETES MELLITUS
     Dosage: 100 UNIT/ML
     Dates: start: 20101004
  14. ONGLYZA [Concomitant]
     Active Substance: SAXAGLIPTIN HYDROCHLORIDE
     Indication: DIABETES MELLITUS
     Dosage: 5 MG
     Route: 065
     Dates: start: 20110801
  15. PROPOXYPHENE. [Concomitant]
     Active Substance: PROPOXYPHENE
     Indication: ANALGESIC THERAPY
  16. ZOLPIDEM TARTRATE. [Concomitant]
     Active Substance: ZOLPIDEM TARTRATE
     Indication: DEPRESSION
     Dosage: 10 MG
     Route: 065
     Dates: start: 20081121
  17. ALBUTEROL. [Concomitant]
     Active Substance: ALBUTEROL
     Indication: BRONCHOSPASM
     Dosage: 90 MCG
     Dates: start: 20130218
  18. CLINDAMYCIN. [Concomitant]
     Active Substance: CLINDAMYCIN
     Indication: INFECTION
     Dosage: 150 MG
     Route: 065
     Dates: start: 20101123
  19. CLOTRIMAZOLE. [Concomitant]
     Active Substance: CLOTRIMAZOLE
     Indication: INFECTION
     Dates: start: 20110801
  20. HYDROCODONE?ACETAMINOPHENE [Concomitant]
     Indication: ANALGESIC THERAPY
     Dosage: 5/500
     Dates: start: 20080302
  21. LEVITRA [Concomitant]
     Active Substance: VARDENAFIL HYDROCHLORIDE TRIHYDRATE
     Indication: ERECTILE DYSFUNCTION
     Dosage: 10 MG
     Route: 065
     Dates: start: 20091109
  22. METFORMIN [Concomitant]
     Active Substance: METFORMIN HYDROCHLORIDE
     Indication: DIABETES MELLITUS
     Dosage: 500 MG
     Route: 065
     Dates: start: 20080417
  23. NAPROXEN. [Concomitant]
     Active Substance: NAPROXEN
     Indication: PYREXIA
     Dosage: 500 MG
     Route: 065
     Dates: start: 20090909
  24. SPIRIVA [Concomitant]
     Active Substance: TIOTROPIUM BROMIDE MONOHYDRATE
     Indication: BRONCHOSPASM
     Dosage: 18 MCG
     Dates: start: 20101202
  25. PANTOPRAZOLE [Suspect]
     Active Substance: PANTOPRAZOLE
     Indication: GASTROOESOPHAGEAL REFLUX DISEASE
     Route: 065
     Dates: start: 20120628, end: 20120723
  26. AGGRENOX [Concomitant]
     Active Substance: ASPIRIN\DIPYRIDAMOLE
     Indication: THROMBOSIS
     Dosage: 200/25
     Route: 065
     Dates: start: 20110203
  27. LEFLUNOMIDE. [Concomitant]
     Active Substance: LEFLUNOMIDE
     Indication: ARTHRITIS
     Dosage: 20 MG
     Dates: start: 20130722
  28. LEVOFLOXACIN. [Concomitant]
     Active Substance: LEVOFLOXACIN
     Indication: INFECTION
     Dosage: 500 MG
     Route: 065
     Dates: start: 20111209
  29. METHYLPREDNISOLONE. [Concomitant]
     Active Substance: METHYLPREDNISOLONE
     Indication: INFLAMMATION
     Dosage: 4 MG
     Route: 065
     Dates: start: 20090511
  30. FLOVENT [Concomitant]
     Active Substance: FLUTICASONE PROPIONATE
     Indication: INFLAMMATION
     Dosage: 50 MCG
     Dates: start: 20111015
  31. LANTUS [Concomitant]
     Active Substance: INSULIN GLARGINE
     Indication: DIABETES MELLITUS
     Dosage: 100 UNITS/ML
     Dates: start: 20141007
  32. LORATADINE. [Concomitant]
     Active Substance: LORATADINE
     Indication: HYPERSENSITIVITY
     Dosage: 10 MG
     Route: 065
     Dates: start: 20090606
  33. TOBRAMYCIN. [Concomitant]
     Active Substance: TOBRAMYCIN
     Indication: INFECTION
     Dosage: 0.3%
     Dates: start: 20080306
  34. SINGULAIR [Concomitant]
     Active Substance: MONTELUKAST SODIUM
     Dosage: 20 MG
     Route: 065
  35. PRILOSEC [Suspect]
     Active Substance: OMEPRAZOLE MAGNESIUM
     Indication: GASTROOESOPHAGEAL REFLUX DISEASE
     Dosage: OMEPRAZOLE
     Route: 048
     Dates: start: 20080229, end: 20110302
  36. ASPIRIN. [Concomitant]
     Active Substance: ASPIRIN
     Indication: CARDIAC DISORDER
     Dosage: 25?200
  37. ADVAIR HFA [Concomitant]
     Active Substance: FLUTICASONE PROPIONATE\SALMETEROL XINAFOATE
     Indication: CHRONIC OBSTRUCTIVE PULMONARY DISEASE
     Dosage: 250/50MCG
     Dates: start: 20110203
  38. ALPRAZOLAM. [Concomitant]
     Active Substance: ALPRAZOLAM
     Indication: ANXIETY
     Dosage: 0.25 MG
     Route: 065
     Dates: start: 20100909
  39. LEVOTHYROXINE. [Concomitant]
     Active Substance: LEVOTHYROXINE
     Indication: HYPOTHYROIDISM
     Dosage: 25 MCG
     Route: 065
     Dates: start: 20130528
  40. PREDNISONE. [Concomitant]
     Active Substance: PREDNISONE
     Indication: INFLAMMATION
     Dosage: 10 MG
     Route: 065
     Dates: start: 20081124
  41. NEXIUM [Suspect]
     Active Substance: ESOMEPRAZOLE MAGNESIUM
     Indication: GASTROOESOPHAGEAL REFLUX DISEASE
     Route: 048
     Dates: start: 2010, end: 2018
  42. CIPROFLOXACIN. [Concomitant]
     Active Substance: CIPROFLOXACIN
     Indication: INFECTION
     Dosage: 500 MG
     Dates: start: 20140312
  43. LISINOPRIL. [Concomitant]
     Active Substance: LISINOPRIL
     Indication: HYPERTENSION
     Dosage: 10 MG
     Route: 065
     Dates: start: 20080229
  44. LUNESTA [Concomitant]
     Active Substance: ESZOPICLONE
     Indication: INSOMNIA
     Dosage: 2 MG
     Route: 065
     Dates: start: 20100512
  45. PRILOSEC [Suspect]
     Active Substance: OMEPRAZOLE MAGNESIUM
     Indication: GASTROOESOPHAGEAL REFLUX DISEASE
     Route: 048
     Dates: start: 20090904, end: 2018
  46. LIVALO [Concomitant]
     Active Substance: PITAVASTATIN CALCIUM
     Indication: BLOOD CHOLESTEROL INCREASED
     Dosage: 2 MG
     Route: 065
     Dates: start: 20111027
  47. PROAIR HFA [Concomitant]
     Active Substance: ALBUTEROL SULFATE
     Indication: BRONCHOSPASM
     Dosage: 90 MCG
     Dates: start: 20090209
  48. TRAMADOL. [Concomitant]
     Active Substance: TRAMADOL
     Indication: ANALGESIC THERAPY
     Dosage: 50 MG
     Route: 065
     Dates: start: 20140726
  49. VENTOLIN HFA [Concomitant]
     Active Substance: ALBUTEROL SULFATE
     Indication: BRONCHOSPASM
     Dosage: 90 MCG
     Dates: start: 20110103
  50. ZETIA [Concomitant]
     Active Substance: EZETIMIBE
     Indication: BLOOD CHOLESTEROL INCREASED
     Dosage: 10 MG
     Route: 065
     Dates: start: 20080729

REACTIONS (2)
  - Death [Fatal]
  - Acute kidney injury [Recovered/Resolved]

NARRATIVE: CASE EVENT DATE: 2015
